FAERS Safety Report 21740399 (Version 1)
Quarter: 2022Q4

REPORT INFORMATION
  Report Type: Spontaneous
  Country: US (occurrence: None)
  Receive Date: 20221216
  Receipt Date: 20221216
  Transmission Date: 20230113
  Serious: Yes (Other)
  Sender: FDA-Public Use
  Company Number: None

PATIENT
  Age: 72 Year
  Sex: Female
  Weight: 74.25 kg

DRUGS (5)
  1. ANASTROZOLE [Suspect]
     Active Substance: ANASTROZOLE
  2. ROSUVASTATIN [Concomitant]
     Active Substance: ROSUVASTATIN
  3. Vitamin^s B-Complex [Concomitant]
  4. D3 [Concomitant]
  5. MAGNESIUM [Concomitant]
     Active Substance: MAGNESIUM

REACTIONS (12)
  - Osteoporosis [None]
  - Tooth disorder [None]
  - Gingival disorder [None]
  - Gingival atrophy [None]
  - Tooth fracture [None]
  - Dental caries [None]
  - Gingivitis [None]
  - Noninfective gingivitis [None]
  - Quality of life decreased [None]
  - Social problem [None]
  - Insurance issue [None]
  - Inability to afford medication [None]
